FAERS Safety Report 23601145 (Version 2)
Quarter: 2024Q2

REPORT INFORMATION
  Report Type: Spontaneous
  Country: SK (occurrence: SK)
  Receive Date: 20240306
  Receipt Date: 20240506
  Transmission Date: 20240716
  Serious: Yes (Life-Threatening, Other)
  Sender: FDA-Public Use
  Company Number: SK-PFIZER INC-PV202400030836

PATIENT

DRUGS (1)
  1. MYLOTARG [Suspect]
     Active Substance: GEMTUZUMAB OZOGAMICIN
     Dosage: UNK

REACTIONS (6)
  - Sepsis [Unknown]
  - Venoocclusive liver disease [Unknown]
  - Hyperbilirubinaemia [Unknown]
  - Clostridium colitis [Unknown]
  - Blood cholesterol abnormal [Unknown]
  - Liver disorder [Unknown]
